FAERS Safety Report 21393143 (Version 1)
Quarter: 2022Q3

REPORT INFORMATION
  Report Type: Spontaneous
  Country: US (occurrence: US)
  Receive Date: 20220929
  Receipt Date: 20220929
  Transmission Date: 20221026
  Serious: Yes (Other)
  Sender: FDA-Public Use
  Company Number: US-BRISTOL-MYERS SQUIBB COMPANY-2022-112566

PATIENT
  Age: 58 Year
  Sex: Male
  Weight: 107.3 kg

DRUGS (1)
  1. REVLIMID [Suspect]
     Active Substance: LENALIDOMIDE
     Indication: Plasma cell myeloma
     Dosage: ONCE DAILY FOR 28 DAYS
     Route: 048
     Dates: start: 20170508, end: 202209

REACTIONS (2)
  - Plasma cell myeloma [Unknown]
  - Adverse event [Unknown]

NARRATIVE: CASE EVENT DATE: 20220901
